FAERS Safety Report 12663504 (Version 1)
Quarter: 2016Q3

REPORT INFORMATION
  Report Type: Spontaneous
  Country: US (occurrence: US)
  Receive Date: 20160818
  Receipt Date: 20160818
  Transmission Date: 20161109
  Serious: No
  Sender: FDA-Public Use
  Company Number: US-MISSION PHARMACAL COMPANY-1056468

PATIENT
  Age: 51 Year
  Sex: Male

DRUGS (2)
  1. THIOLA [Suspect]
     Active Substance: TIOPRONIN
     Indication: NEPHROLITHIASIS
     Route: 065
     Dates: start: 20151126
  2. LASIX [Concomitant]
     Active Substance: FUROSEMIDE
     Route: 065

REACTIONS (6)
  - Renal stone removal [Unknown]
  - Neoplasm malignant [Recovered/Resolved]
  - Haemorrhage [Recovered/Resolved]
  - Fluid retention [Unknown]
  - Proteinuria [Unknown]
  - Weight decreased [Unknown]
